FAERS Safety Report 9173657 (Version 2)
Quarter: 2013Q2

REPORT INFORMATION
  Report Type: Spontaneous
  Country: FR (occurrence: None)
  Receive Date: 20130318
  Receipt Date: 20130628
  Transmission Date: 20140414
  Serious: Yes (Hospitalization, Other)
  Sender: FDA-Public Use
  Company Number: 2012231792

PATIENT
  Age: 4 Year
  Sex: Female
  Weight: 16.8 kg

DRUGS (3)
  1. CRIZOTINIB [Suspect]
     Indication: ANAPLASTIC LARGE-CELL LYMPHOMA
     Route: 048
     Dates: start: 20120807
  2. DEXAMETHASONE (DEXAMETHASONE) [Suspect]
     Indication: ANAPLASTIC LARGE-CELL LYMPHOMA
  3. BACTRIM (SULFAMETHOXAZOLE) [Concomitant]

REACTIONS (28)
  - Tibia fracture [None]
  - Pain in extremity [None]
  - Neutropenia [None]
  - Aspartate aminotransferase increased [None]
  - Keratosis pilaris [None]
  - Dry eye [None]
  - Groin pain [None]
  - Femoral neck fracture [None]
  - Pruritus [None]
  - Performance status decreased [None]
  - Gait disturbance [None]
  - Treatment failure [None]
  - Stress fracture [None]
  - Toxicity to various agents [None]
  - Bone disorder [None]
  - Alanine aminotransferase increased [None]
  - Platelet count increased [None]
  - Haemoglobin decreased [None]
  - Haematotoxicity [None]
  - Dermatosis [None]
  - Blood alkaline phosphatase increased [None]
  - Vitamin D deficiency [None]
  - Bone pain [None]
  - Condition aggravated [None]
  - Osteocalcin decreased [None]
  - Bone metabolism disorder [None]
  - Xerosis [None]
  - Transplant [None]
